FAERS Safety Report 17130276 (Version 1)
Quarter: 2019Q4

REPORT INFORMATION
  Report Type: Spontaneous
  Country: JP (occurrence: JP)
  Receive Date: 20191209
  Receipt Date: 20191209
  Transmission Date: 20200122
  Serious: Yes (Hospitalization, Other)
  Sender: FDA-Public Use
  Company Number: JP-PFIZER INC-2019528907

PATIENT
  Age: 8 Decade
  Sex: Male

DRUGS (1)
  1. LYRICA OD 150MG [Suspect]
     Active Substance: PREGABALIN

REACTIONS (3)
  - Cardiac failure [Unknown]
  - Hypoaesthesia [Unknown]
  - Pneumonia [Unknown]
